FAERS Safety Report 12586940 (Version 1)
Quarter: 2016Q3

REPORT INFORMATION
  Report Type: Spontaneous
  Country: US (occurrence: None)
  Receive Date: 20160722
  Receipt Date: 20160722
  Transmission Date: 20161109
  Serious: Yes (Hospitalization)
  Sender: FDA-Public Use
  Company Number: None

PATIENT
  Age: 54 Year
  Sex: Male
  Weight: 102.3 kg

DRUGS (1)
  1. BEVACIZUMAB (RHUMAB VEGF) [Suspect]
     Active Substance: BEVACIZUMAB
     Dates: end: 20160608

REACTIONS (4)
  - Nephrolithiasis [None]
  - Intervertebral disc protrusion [None]
  - Vertebral foraminal stenosis [None]
  - Arthralgia [None]

NARRATIVE: CASE EVENT DATE: 20160620
